FAERS Safety Report 21471719 (Version 1)
Quarter: 2022Q4

REPORT INFORMATION
  Report Type: Spontaneous
  Country: US (occurrence: None)
  Receive Date: 20221018
  Receipt Date: 20221018
  Transmission Date: 20230112
  Serious: Yes (Disabling, Other)
  Sender: FDA-Public Use
  Company Number: None

PATIENT
  Age: 59 Year
  Sex: Female
  Weight: 54 kg

DRUGS (10)
  1. FENTANYL TRANSDERMAL SYSTEM [Suspect]
     Active Substance: FENTANYL
     Indication: Post procedural complication
     Dosage: OTHER FREQUENCY : EVERY 48HOURS;?
     Route: 061
  2. PRILOSEC [Concomitant]
     Active Substance: OMEPRAZOLE MAGNESIUM
  3. ANTI INFLAMMATORIES [Concomitant]
  4. PROBIOTICS NOS [Concomitant]
     Active Substance: PROBIOTICS NOS
  5. STOOL SOFTENER (DOCUSATE) [Concomitant]
     Active Substance: DOCUSATE
  6. PROTEIN SUPPLIMENTS [Concomitant]
  7. WHEEL CHAIR [Concomitant]
  8. FOOT BRACES [Concomitant]
  9. MELATONIN [Concomitant]
     Active Substance: MELATONIN
  10. DIGESTIVE AIDE [Concomitant]

REACTIONS (4)
  - Product adhesion issue [None]
  - Drug delivery system malfunction [None]
  - Pain [None]
  - Product substitution issue [None]

NARRATIVE: CASE EVENT DATE: 20211001
